FAERS Safety Report 17324546 (Version 5)
Quarter: 2022Q3

REPORT INFORMATION
  Report Type: Spontaneous
  Country: JP (occurrence: JP)
  Receive Date: 20200127
  Receipt Date: 20220701
  Transmission Date: 20221027
  Serious: Yes (Other)
  Sender: FDA-Public Use
  Company Number: JP-BRISTOL-MYERS SQUIBB COMPANY-BMS-2019-101135

PATIENT
  Age: 70 Year
  Sex: Male
  Weight: 61.5 kg

DRUGS (15)
  1. OPDIVO [Suspect]
     Active Substance: NIVOLUMAB
     Indication: Renal cell carcinoma stage IV
     Dosage: 240 MG, Q3W
     Route: 041
     Dates: start: 20190820, end: 20190910
  2. YERVOY [Suspect]
     Active Substance: IPILIMUMAB
     Indication: Renal cell carcinoma stage IV
     Dosage: 62 MILLIGRAM
     Route: 041
     Dates: start: 20190820, end: 20190820
  3. DENOSUMAB [Concomitant]
     Active Substance: DENOSUMAB
     Indication: Renal cell carcinoma
     Dosage: 120 MG, Q4W
     Route: 058
     Dates: start: 20190730
  4. DENOSUMAB [Concomitant]
     Active Substance: DENOSUMAB
     Indication: Renal cell carcinoma stage IV
  5. CILOSTAZOL [Concomitant]
     Active Substance: CILOSTAZOL
     Dosage: 50 MG, Q12H
     Route: 048
     Dates: start: 20181024
  6. CILOSTAZOL [Concomitant]
     Active Substance: CILOSTAZOL
     Indication: Aortic stenosis
  7. ALLOPURINOL [Concomitant]
     Active Substance: ALLOPURINOL
     Dosage: 100 MG, EVERYDAY
     Route: 048
  8. ALLOPURINOL [Concomitant]
     Active Substance: ALLOPURINOL
     Indication: Hyperuricaemia
     Dosage: 100 MILLIGRAM, QD
     Route: 048
  9. UMECLIDINIUM BROMIDE\VILANTEROL TRIFENATATE [Concomitant]
     Active Substance: UMECLIDINIUM BROMIDE\VILANTEROL TRIFENATATE
     Dosage: UNK, EVERYDAY
     Route: 055
     Dates: start: 20190906
  10. UMECLIDINIUM BROMIDE\VILANTEROL TRIFENATATE [Concomitant]
     Active Substance: UMECLIDINIUM BROMIDE\VILANTEROL TRIFENATATE
     Indication: Chronic obstructive pulmonary disease
  11. ICOSAPENT ETHYL [Concomitant]
     Active Substance: ICOSAPENT ETHYL
     Indication: Arteriosclerosis
     Dosage: 900 MILLIGRAM, Q12H
     Route: 048
     Dates: start: 20190819
  12. ATORVASTATIN CALCIUM TRIHYDRATE [Concomitant]
     Active Substance: ATORVASTATIN CALCIUM TRIHYDRATE
     Indication: Hyperuricaemia
     Dosage: 20 MILLIGRAM, QD
     Route: 048
     Dates: start: 20181024
  13. BEPOTASTINE BESYLATE [Concomitant]
     Active Substance: BEPOTASTINE BESYLATE
     Indication: Rhinitis allergic
     Dosage: 10 MILLIGRAM, BID
     Route: 048
     Dates: start: 20190830, end: 20190930
  14. CLOBETASOL [Concomitant]
     Active Substance: CLOBETASOL
     Indication: Product used for unknown indication
     Dosage: UNK
     Route: 003
     Dates: start: 20190903, end: 20191015
  15. CHLORPHENIRAMINE MALEATE [Concomitant]
     Active Substance: CHLORPHENIRAMINE MALEATE
     Indication: Product used for unknown indication
     Dosage: UNK
     Route: 003
     Dates: start: 20190903, end: 20191015

REACTIONS (3)
  - Toxic skin eruption [Recovered/Resolved]
  - Rhinitis allergic [Recovering/Resolving]
  - Infusion related reaction [Recovered/Resolved]

NARRATIVE: CASE EVENT DATE: 20190830
